FAERS Safety Report 13584379 (Version 1)
Quarter: 2017Q2

REPORT INFORMATION
  Report Type: Spontaneous
  Country: US (occurrence: US)
  Receive Date: 20170526
  Receipt Date: 20170526
  Transmission Date: 20170830
  Serious: Yes (Other)
  Sender: FDA-Public Use
  Company Number: US-BION-006332

PATIENT
  Age: 41 Year
  Sex: Female
  Weight: 55.79 kg

DRUGS (1)
  1. CETIRIZINE/CETIRIZINE HYDROCHLORIDE [Suspect]
     Active Substance: CETIRIZINE HYDROCHLORIDE
     Indication: SEASONAL ALLERGY
     Dosage: 1 CAPLET DAILY
     Route: 048

REACTIONS (2)
  - Loss of consciousness [Recovered/Resolved]
  - Fatigue [Recovered/Resolved]
